FAERS Safety Report 4320572-5 (Version None)
Quarter: 2004Q1

REPORT INFORMATION
  Report Type: 
  Country: None (occurrence: None)
  Receive Date: 20040319
  Receipt Date: 20040319
  Transmission Date: 20041129
  Serious: Yes (Life-Threatening, Hospitalization)
  Sender: FDA-Public Use
  Company Number: None

PATIENT
  Sex: Male

DRUGS (2)
  1. WARFARIN SODIUM [Suspect]
     Indication: AORTIC VALVE REPLACEMENT
     Dosage: 2.5 MG QD
  2. BACTRIM DS [Suspect]
     Indication: STENOTROPHOMONAS INFECTION
     Dosage: BID
     Dates: start: 20031015, end: 20031028

REACTIONS (8)
  - ABDOMINAL PAIN [None]
  - GALLBLADDER DISORDER [None]
  - HAEMATEMESIS [None]
  - HAEMATOMA [None]
  - INTERNATIONAL NORMALISED RATIO INCREASED [None]
  - JAUNDICE [None]
  - STENOTROPHOMONAS INFECTION [None]
  - THROMBOSIS [None]
